FAERS Safety Report 6983915-X (Version None)
Quarter: 2010Q3

REPORT INFORMATION
  Report Type: 
  Country: None (occurrence: None)
  Receive Date: 20100914
  Receipt Date: 20090331
  Transmission Date: 20110219
  Serious: No
  Sender: FDA-Public Use
  Company Number: US-WYE-H08792109

PATIENT
  Sex: Male

DRUGS (3)
  1. ADVIL LIQUI-GELS [Suspect]
     Indication: PAIN
     Dosage: 1-3 TABLETS AS NEEDED
     Route: 048
     Dates: end: 20090330
  2. SULFAMETHOXAZOLE AND TRIMETHOPRIM [Concomitant]
  3. DOXYCYCLINE HYDROCHLORIDE [Concomitant]

REACTIONS (2)
  - CHEST PAIN [None]
  - INCORRECT DOSE ADMINISTERED [None]
